FAERS Safety Report 21018345 (Version 1)
Quarter: 2022Q2

REPORT INFORMATION
  Report Type: Spontaneous
  Country: US (occurrence: None)
  Receive Date: 20220627
  Receipt Date: 20220627
  Transmission Date: 20220721
  Serious: Yes (Other)
  Sender: FDA-Public Use
  Company Number: None

PATIENT
  Age: 66 Year
  Sex: Male

DRUGS (14)
  1. LENVIMA [Suspect]
     Active Substance: LENVATINIB
     Dosage: FREQUENCY : DAILY;?
     Dates: start: 202206, end: 202206
  2. LABETALOL [Concomitant]
  3. ACETAMINOPHEN [Concomitant]
  4. ATORVASTATIN [Concomitant]
  5. BIOTIN [Concomitant]
     Active Substance: BIOTIN
  6. CARVEDILOL [Concomitant]
  7. FUROSEMIDE [Concomitant]
     Active Substance: FUROSEMIDE
  8. IBUPROFEN [Concomitant]
  9. MAGNESIUM OXIDE [Concomitant]
     Active Substance: MAGNESIUM OXIDE
  10. OCUVITE ADULT 50+ [Concomitant]
  11. POTASSIUM CL [Concomitant]
  12. VALSARTAN [Concomitant]
     Active Substance: VALSARTAN
  13. VITAMIN B-12 [Concomitant]
  14. VITAMIN D3 [Concomitant]
     Active Substance: CHOLECALCIFEROL

REACTIONS (2)
  - Muscle spasms [None]
  - Therapy cessation [None]
